FAERS Safety Report 23350707 (Version 2)
Quarter: 2024Q1

REPORT INFORMATION
  Report Type: Spontaneous
  Country: IT (occurrence: IT)
  Receive Date: 20231229
  Receipt Date: 20240313
  Transmission Date: 20240409
  Serious: Yes (Hospitalization, Other)
  Sender: FDA-Public Use
  Company Number: IT-PFM-2023-06971

PATIENT
  Age: 30 Year
  Sex: Male

DRUGS (13)
  1. BENDAMUSTINE HYDROCHLORIDE [Suspect]
     Active Substance: BENDAMUSTINE HYDROCHLORIDE
     Indication: Hodgkin^s disease
     Dosage: UNK
     Route: 065
     Dates: start: 202002, end: 2020
  2. GEMCITABINE [Suspect]
     Active Substance: GEMCITABINE
     Indication: Hodgkin^s disease
     Dosage: BEGEV REGIMEN
     Route: 065
     Dates: start: 202002, end: 2020
  3. BRENTUXIMAB VEDOTIN [Suspect]
     Active Substance: BRENTUXIMAB VEDOTIN
     Indication: Hodgkin^s disease
     Dosage: UNK
     Route: 065
     Dates: start: 202004, end: 2020
  4. BLEOMYCIN\DACARBAZINE\DOXORUBICIN\VINBLASTINE [Suspect]
     Active Substance: BLEOMYCIN\DACARBAZINE\DOXORUBICIN\VINBLASTINE
     Indication: Hodgkin^s disease
     Dosage: UNK
     Route: 065
     Dates: start: 202004
  5. VINORELBINE [Suspect]
     Active Substance: VINORELBINE TARTRATE
     Indication: Hodgkin^s disease
     Dosage: UNK
     Route: 065
     Dates: start: 202002, end: 2020
  6. VINBLASTINE [Suspect]
     Active Substance: VINBLASTINE
     Indication: Hodgkin^s disease
     Dosage: UNK
     Route: 065
     Dates: start: 202004, end: 2020
  7. VINCRISTINE [Suspect]
     Active Substance: VINCRISTINE
     Indication: Hodgkin^s disease
     Dosage: 2 CYCLICAL (DOSE: CYCLICALOEPA POLYCHEMOTHERAPY)
     Route: 065
  8. ETOPOSIDE [Suspect]
     Active Substance: ETOPOSIDE
     Indication: Hodgkin^s disease
     Dosage: 2 CYCLICAL  (DOSE: CYCLICALOEPA POLYCHEMOTHERAPY (VINCRISTINE, ETOPOSIDE, AND DOXORUBICIN HYDROCHLOR
     Route: 065
  9. DACARBAZINE [Suspect]
     Active Substance: DACARBAZINE
     Indication: Hodgkin^s disease
     Dosage: ABVD REGIMEN
     Route: 065
     Dates: start: 202004, end: 2020
  10. DOXORUBICIN HYDROCHLORIDE [Suspect]
     Active Substance: DOXORUBICIN HYDROCHLORIDE
     Indication: Hodgkin^s disease
     Dosage: 2 CYCLICAL (DOSE: CYCLICALOEPA POLYCHEMOTHERAPY (VINCRISTINE, ETOPOSIDE, AND DOXORUBICIN HYDROCHLORI
     Route: 065
     Dates: start: 202004, end: 2020
  11. NIVOLUMAB [Suspect]
     Active Substance: NIVOLUMAB
     Indication: Hodgkin^s disease
     Dosage: UNK
     Route: 065
     Dates: start: 202006, end: 202010
  12. NIVOLUMAB [Suspect]
     Active Substance: NIVOLUMAB
     Dosage: UNK
     Route: 065
     Dates: start: 202011
  13. BLEOMYCIN [Suspect]
     Active Substance: BLEOMYCIN SULFATE
     Indication: Hodgkin^s disease
     Dosage: ABVD REGIMENBLEOMYCIN WAS REPLACED WITH BV
     Route: 065
     Dates: start: 202004, end: 2020

REACTIONS (3)
  - Haematotoxicity [Unknown]
  - Product use in unapproved indication [Unknown]
  - Off label use [Unknown]

NARRATIVE: CASE EVENT DATE: 20200401
